FAERS Safety Report 8297811-1 (Version None)
Quarter: 2012Q2

REPORT INFORMATION
  Report Type: 
  Country: None (occurrence: None)
  Receive Date: 20120419
  Receipt Date: 20120413
  Transmission Date: 20120825
  Serious: Yes (Hospitalization, Other)
  Sender: FDA-Public Use
  Company Number: US-BAYER-2011-123695

PATIENT
  Age: 25 Year
  Sex: Female
  Weight: 65.76 kg

DRUGS (2)
  1. YAZ [Suspect]
     Dosage: UNK
     Dates: start: 20040101
  2. YASMIN [Suspect]
     Dosage: UNK
     Dates: start: 20040901, end: 20041201

REACTIONS (5)
  - NAUSEA [None]
  - CHOLECYSTITIS CHRONIC [None]
  - GALLBLADDER NON-FUNCTIONING [None]
  - ABDOMINAL PAIN [None]
  - INJURY [None]
